FAERS Safety Report 7265498-2 (Version None)
Quarter: 2011Q1

REPORT INFORMATION
  Report Type: 
  Country: None (occurrence: None)
  Receive Date: 20110131
  Receipt Date: 20110118
  Transmission Date: 20110831
  Serious: Yes (Hospitalization, Other)
  Sender: FDA-Public Use
  Company Number: US-ROCHE-754788

PATIENT
  Age: 42 Year
  Sex: Female
  Weight: 83.6 kg

DRUGS (1)
  1. INVIRASE [Suspect]
     Dosage: START DATE: SEVERAL YEARS
     Route: 048

REACTIONS (4)
  - MENTAL STATUS CHANGES [None]
  - ENCEPHALITIS CYTOMEGALOVIRUS [None]
  - MALABSORPTION [None]
  - WEIGHT DECREASED [None]
